FAERS Safety Report 7675854-6 (Version None)
Quarter: 2011Q3

REPORT INFORMATION
  Report Type: 
  Country: None (occurrence: None)
  Receive Date: 20110811
  Receipt Date: 20110730
  Transmission Date: 20111222
  Serious: Yes (Other)
  Sender: FDA-Public Use
  Company Number: CN-PAR PHARMACEUTICAL, INC-2011SCPR003158

PATIENT

DRUGS (4)
  1. CETUXIMAB [Suspect]
     Dosage: 250 MG/M2 FOR 60 MIN PER WEEK
     Route: 041
  2. CETUXIMAB [Suspect]
     Indication: HYPOPHARYNGEAL CANCER STAGE II
     Dosage: 400 MG/M2 FOR 120 MIN, FOLLOWED BY 250 MG/M2 FOR 60 MIN WEEKLY
     Route: 041
  3. CARBOPLATIN [Suspect]
     Indication: HYPOPHARYNGEAL CANCER STAGE II
     Dosage: UNK, UNKNOWN
     Route: 065
  4. DOXYCYCLINE [Suspect]
     Indication: HYPOPHARYNGEAL CANCER STAGE II
     Dosage: UNK, UNKNOWN
     Route: 065

REACTIONS (3)
  - SKIN REACTION [None]
  - HAEMATOTOXICITY [None]
  - RASH [None]
